FAERS Safety Report 25892431 (Version 2)
Quarter: 2025Q4

REPORT INFORMATION
  Report Type: Spontaneous
  Country: NZ (occurrence: NZ)
  Receive Date: 20251007
  Receipt Date: 20251224
  Transmission Date: 20260117
  Serious: Yes (Hospitalization, Other)
  Sender: MYLAN
  Company Number: NZ-MYLANLABS-2025M1044415

PATIENT
  Age: 82 Year
  Sex: Male

DRUGS (35)
  1. SPIRONOLACTONE [Suspect]
     Active Substance: SPIRONOLACTONE
     Indication: Product used for unknown indication
     Dosage: UNK
  2. IBUPROFEN [Suspect]
     Active Substance: IBUPROFEN
     Indication: Product used for unknown indication
     Dosage: UNK, PRN (400, UNITS NOT REPORTED)
     Route: 061
  3. IBUPROFEN [Suspect]
     Active Substance: IBUPROFEN
     Indication: Product used for unknown indication
     Dosage: UNK
  4. SPIRONOLACTONE [Suspect]
     Active Substance: SPIRONOLACTONE
     Indication: Cardiac failure
     Dosage: 25 MILLIGRAM, QD
     Route: 061
     Dates: start: 202412
  5. SPIRONOLACTONE [Suspect]
     Active Substance: SPIRONOLACTONE
     Dosage: 12.5 MILLIGRAM, QD
     Route: 061
     Dates: start: 202501, end: 20250130
  6. SPIRONOLACTONE [Suspect]
     Active Substance: SPIRONOLACTONE
     Dosage: 100 MILLIGRAM, QD
     Route: 061
     Dates: start: 20250211, end: 20250224
  7. SPIRONOLACTONE [Suspect]
     Active Substance: SPIRONOLACTONE
     Dosage: 25 MILLIGRAM, QD
     Route: 061
     Dates: start: 2025, end: 20250405
  8. METOPROLOL [Suspect]
     Active Substance: METOPROLOL
     Indication: Atrial fibrillation
     Dosage: 47.5 MILLIGRAM, QD (DAILY)
     Route: 061
     Dates: start: 202112, end: 20250405
  9. METOPROLOL [Suspect]
     Active Substance: METOPROLOL
     Indication: Product used for unknown indication
     Dosage: UNK
  10. CODEINE PHOSPHATE [Concomitant]
     Active Substance: CODEINE PHOSPHATE
     Indication: Back pain
     Dosage: 60 MILLIGRAM, QD
     Route: 061
     Dates: start: 20240116, end: 20250405
  11. BISOPROLOL [Concomitant]
     Active Substance: BISOPROLOL
     Indication: Product used for unknown indication
     Dosage: 2.5 MILLIGRAM, QD
  12. ALLOPURINOL [Concomitant]
     Active Substance: ALLOPURINOL
     Indication: Gout
     Dosage: 300 MILLIGRAM, QD
     Route: 061
     Dates: start: 20231103
  13. TRAMADOL [Concomitant]
     Active Substance: TRAMADOL
     Indication: Back pain
     Dosage: 100 MILLIGRAM, PRN
     Route: 061
  14. LANTUS [Concomitant]
     Active Substance: INSULIN GLARGINE
     Indication: Type 2 diabetes mellitus
     Dosage: 12 INTERNATIONAL UNIT, QD
     Dates: start: 2024
  15. RIVAROXABAN [Concomitant]
     Active Substance: RIVAROXABAN
     Indication: Atrial fibrillation
     Dosage: 15 MILLIGRAM, QD
     Route: 061
     Dates: start: 201912
  16. OMEPRAZOLE [Concomitant]
     Active Substance: OMEPRAZOLE
     Indication: Gastrooesophageal reflux disease
     Dosage: 20 MILLIGRAM, QD
     Route: 061
     Dates: start: 2005
  17. FUROSEMIDE [Concomitant]
     Active Substance: FUROSEMIDE
     Indication: Cardiac failure
     Dosage: 40 MILLIGRAM, QD
     Route: 061
     Dates: start: 20210314, end: 20250405
  18. FUROSEMIDE [Concomitant]
     Active Substance: FUROSEMIDE
     Indication: Oedema
     Dosage: 40 MILLIGRAM, PRN
     Route: 061
     Dates: start: 20210314, end: 20250405
  19. EMPAGLIFLOZIN\METFORMIN HYDROCHLORIDE [Concomitant]
     Active Substance: EMPAGLIFLOZIN\METFORMIN HYDROCHLORIDE
     Indication: Type 2 diabetes mellitus
     Dosage: 512.5 MILLIGRAM, QD
     Route: 061
     Dates: start: 20210418
  20. EMPAGLIFLOZIN\METFORMIN HYDROCHLORIDE [Concomitant]
     Active Substance: EMPAGLIFLOZIN\METFORMIN HYDROCHLORIDE
     Dosage: 512.5 MILLIGRAM, BID
     Route: 061
     Dates: start: 20210418
  21. Panadeine [Concomitant]
     Indication: Back pain
     Dosage: 500 MILLIGRAM, PRN
     Route: 061
  22. DOCUSATE SODIUM\SENNOSIDES A AND B [Concomitant]
     Active Substance: DOCUSATE SODIUM\SENNOSIDES A AND B
     Indication: Constipation prophylaxis
     Dosage: 1 DOSAGE FORM, QD
     Route: 061
     Dates: start: 20220616
  23. AMITRIPTYLINE [Concomitant]
     Active Substance: AMITRIPTYLINE
     Indication: Neck pain
     Dosage: 10 MILLIGRAM, QD
     Route: 061
  24. AMITRIPTYLINE [Concomitant]
     Active Substance: AMITRIPTYLINE
     Indication: Back pain
     Dosage: UNK, QD ( 10-20 MG QD PO NOCTE (SIC: NIGHTLY)/PRN )
     Route: 061
  25. AMITRIPTYLINE [Concomitant]
     Active Substance: AMITRIPTYLINE
     Indication: Sleep disorder
  26. ZOPICLONE [Concomitant]
     Active Substance: ZOPICLONE
     Indication: Insomnia
     Dosage: 7.5 MILLIGRAM, QD
     Route: 061
     Dates: start: 202501
  27. CANNABIDIOL [Concomitant]
     Active Substance: CANNABIDIOL
     Indication: Analgesic therapy
     Dosage: 12.5 MILLIGRAM, QD
     Dates: start: 20250313
  28. COVID-19 vaccine [Concomitant]
     Dosage: UNK
     Dates: start: 20210614, end: 20210614
  29. COVID-19 vaccine [Concomitant]
     Dosage: UNK
     Dates: start: 20210705, end: 20210705
  30. COVID-19 vaccine [Concomitant]
     Dosage: UNK (BOOSTER)
     Dates: start: 20220104, end: 20220104
  31. COVID-19 vaccine [Concomitant]
     Dosage: UNK (BOOSTER)
     Dates: start: 20220601, end: 20220601
  32. COVID-19 vaccine [Concomitant]
     Dosage: UNK
     Dates: start: 20230414, end: 20230414
  33. ACORAMIDIS [Concomitant]
     Active Substance: ACORAMIDIS
     Dosage: UNK
     Dates: start: 20230228, end: 20250403
  34. ACETAMINOPHEN [Concomitant]
     Active Substance: ACETAMINOPHEN
     Indication: Back pain
     Dosage: 1 GRAM, QID (1 G FOUR TIMES DAILY PRN)
     Route: 061
     Dates: start: 20240116
  35. METARAMINOL [Concomitant]
     Active Substance: METARAMINOL
     Dosage: UNK

REACTIONS (11)
  - Patella fracture [Recovered/Resolved]
  - Pulmonary embolism [Unknown]
  - Hyperkalaemia [Not Recovered/Not Resolved]
  - Cardiac failure [Unknown]
  - Renal impairment [Recovered/Resolved]
  - Lymphadenitis [Not Recovered/Not Resolved]
  - Cholelithiasis [Not Recovered/Not Resolved]
  - Hypotension [Unknown]
  - Fall [Unknown]
  - Osteopenia [Unknown]
  - Chondrocalcinosis [Unknown]

NARRATIVE: CASE EVENT DATE: 20240101
